FAERS Safety Report 16631343 (Version 1)
Quarter: 2019Q3

REPORT INFORMATION
  Report Type: Spontaneous
  Country: US (occurrence: US)
  Receive Date: 20190725
  Receipt Date: 20190725
  Transmission Date: 20191004
  Serious: No
  Sender: FDA-Public Use
  Company Number: US-LUPIN PHARMACEUTICALS INC.-2018-08038

PATIENT
  Sex: Female

DRUGS (1)
  1. GAVILYTE G [Suspect]
     Active Substance: POLYETHYLENE GLYCOL 3350\POTASSIUM CHLORIDE\SODIUM BICARBONATE\SODIUM CHLORIDE\SODIUM SULFATE ANHYDROUS
     Indication: CONSTIPATION
     Dosage: 240 ML, UNK, (8 OUNCES EVERY 30 MINUTES)
     Route: 048

REACTIONS (3)
  - Off label use [Unknown]
  - Gastrointestinal motility disorder [Unknown]
  - Incorrect drug administration rate [Unknown]
